FAERS Safety Report 9255785 (Version 3)
Quarter: 2013Q3

REPORT INFORMATION
  Report Type: Spontaneous
  Country: US (occurrence: US)
  Receive Date: 20130425
  Receipt Date: 20130905
  Transmission Date: 20140515
  Serious: Yes (Other)
  Sender: FDA-Public Use
  Company Number: US-BRISTOL-MYERS SQUIBB COMPANY-17409335

PATIENT
  Age: 81 Year
  Sex: Female
  Weight: 66.66 kg

DRUGS (1)
  1. ABATACEPT SUBQ INJECTION 125MG/ML [Suspect]
     Indication: RHEUMATOID ARTHRITIS
     Dosage: LAST INF:10APR2013
     Route: 058
     Dates: start: 20130218

REACTIONS (6)
  - Injury associated with device [Unknown]
  - Wrong technique in drug usage process [Unknown]
  - Pain [Unknown]
  - Drug ineffective [Unknown]
  - Injection site reaction [Unknown]
  - Product quality issue [Unknown]
